FAERS Safety Report 4547559-1 (Version None)
Quarter: 2004Q4

REPORT INFORMATION
  Report Type: 
  Country: None (occurrence: None)
  Receive Date: 20041227
  Receipt Date: 20041105
  Transmission Date: 20050328
  Serious: No
  Sender: FDA-Public Use
  Company Number: 04P-163-0280054-00

PATIENT
  Age: 65 Year
  Sex: Female
  Weight: 63.5036 kg

DRUGS (7)
  1. HUMIRA [Suspect]
     Indication: RHEUMATOID ARTHRITIS
     Dosage: 40 MG, 1 IN 2 WK, SUBCUTANEOUS
     Route: 058
     Dates: start: 20040501
  2. HYDROXYCHLOROQUINE PHOSPHATE [Concomitant]
  3. PREDNISONE [Concomitant]
  4. METHOTREXATE SODIUM [Concomitant]
  5. CALCIUM GLUCONATE [Concomitant]
  6. MULTI-VITAMINS [Concomitant]
  7. FOLIC ACID [Concomitant]

REACTIONS (3)
  - BLOOD IRON DECREASED [None]
  - PLATELET COUNT DECREASED [None]
  - VISION BLURRED [None]
